FAERS Safety Report 8550358-7 (Version None)
Quarter: 2012Q3

REPORT INFORMATION
  Report Type: 
  Country: None (occurrence: None)
  Receive Date: 20120730
  Receipt Date: 20120719
  Transmission Date: 20120928
  Serious: No
  Sender: FDA-Public Use
  Company Number: US-009507513-1207USA008962

PATIENT

DRUGS (2)
  1. CLARITIN [Suspect]
     Dosage: 5 MG, BID
     Route: 048
     Dates: start: 20120719
  2. CLARITIN [Suspect]
     Indication: SEASONAL ALLERGY
     Dosage: 1 DF, QD
     Route: 048

REACTIONS (1)
  - OVERDOSE [None]
